FAERS Safety Report 20616826 (Version 2)
Quarter: 2022Q2

REPORT INFORMATION
  Report Type: Spontaneous
  Country: CA (occurrence: CA)
  Receive Date: 20220321
  Receipt Date: 20220409
  Transmission Date: 20220721
  Serious: Yes (Hospitalization, Other)
  Sender: FDA-Public Use
  Company Number: CA-002147023-NVSC2022CA054835

PATIENT
  Sex: Female

DRUGS (2)
  1. XOLAIR [Suspect]
     Active Substance: OMALIZUMAB
     Indication: Product used for unknown indication
     Dosage: 1 DOSAGE FORM
     Route: 065
  2. SPIRIVA RESPIMAT [Concomitant]
     Active Substance: TIOTROPIUM BROMIDE

REACTIONS (8)
  - Oral fungal infection [Unknown]
  - Oropharyngeal blistering [Unknown]
  - Tongue blistering [Unknown]
  - Tongue exfoliation [Unknown]
  - Tongue discolouration [Unknown]
  - Feeling abnormal [Unknown]
  - Dehydration [Unknown]
  - Headache [Unknown]
